FAERS Safety Report 11991038 (Version 1)
Quarter: 2016Q1

REPORT INFORMATION
  Report Type: Spontaneous
  Country: FR (occurrence: None)
  Receive Date: 20160201
  Receipt Date: 20160201
  Transmission Date: 20160526
  Serious: No
  Sender: FDA-Public Use
  Company Number: FR2016K0311LIT

PATIENT
  Age: 60 Year
  Sex: Male

DRUGS (3)
  1. LANSOPRAZOLE GENERIC (LANSOPRAZOLE) UNKNOWN [Suspect]
     Active Substance: LANSOPRAZOLE
  2. EZETIMIBE WORLD (EZETIMIBE) UNKNOWN [Suspect]
     Active Substance: EZETIMIBE
  3. RANITIDINE [Suspect]
     Active Substance: RANITIDINE\RANITIDINE HYDROCHLORIDE

REACTIONS (1)
  - Systemic lupus erythematosus [None]
